FAERS Safety Report 24092786 (Version 2)
Quarter: 2024Q3

REPORT INFORMATION
  Report Type: Spontaneous
  Country: JP (occurrence: JP)
  Receive Date: 20240715
  Receipt Date: 20240911
  Transmission Date: 20241016
  Serious: Yes (Other)
  Sender: FERRING
  Company Number: JP-ferring-EVA202401010FERRINGPH

PATIENT

DRUGS (3)
  1. MENOTROPINS [Suspect]
     Active Substance: MENOTROPINS
     Indication: Ovulation induction
     Route: 065
  2. CLOMID [Suspect]
     Active Substance: CLOMIPHENE CITRATE
     Indication: Ovulation induction
     Route: 065
  3. GONADOTROPHIN, CHORIONIC [Suspect]
     Active Substance: GONADOTROPHIN, CHORIONIC
     Indication: Ovulation induction
     Route: 065

REACTIONS (1)
  - Ectopic pregnancy [Unknown]
